FAERS Safety Report 10085493 (Version 3)
Quarter: 2014Q3

REPORT INFORMATION
  Report Type: Spontaneous
  Country: US (occurrence: US)
  Receive Date: 20140418
  Receipt Date: 20140721
  Transmission Date: 20150326
  Serious: No
  Sender: FDA-Public Use
  Company Number: US-BIOGENIDEC-2014BI036295

PATIENT
  Age: 53 Year
  Sex: Female
  Weight: 64 kg

DRUGS (3)
  1. AMPYRA [Concomitant]
     Active Substance: DALFAMPRIDINE
     Indication: GAIT DISTURBANCE
     Route: 048
     Dates: start: 201210, end: 201403
  2. AMPYRA [Concomitant]
     Active Substance: DALFAMPRIDINE
     Indication: GAIT DISTURBANCE
     Route: 048
     Dates: start: 201403
  3. TYSABRI [Suspect]
     Active Substance: NATALIZUMAB
     Indication: MULTIPLE SCLEROSIS
     Route: 042
     Dates: start: 2009, end: 20131230

REACTIONS (5)
  - Muscle spasms [Not Recovered/Not Resolved]
  - Insomnia [Not Recovered/Not Resolved]
  - Gait disturbance [Recovered/Resolved]
  - Musculoskeletal disorder [Not Recovered/Not Resolved]
  - Viral test positive [Unknown]

NARRATIVE: CASE EVENT DATE: 2012
